FAERS Safety Report 14742032 (Version 2)
Quarter: 2018Q2

REPORT INFORMATION
  Report Type: Spontaneous
  Country: CO (occurrence: CO)
  Receive Date: 20180410
  Receipt Date: 20180412
  Transmission Date: 20180711
  Serious: Yes (Death, Other)
  Sender: FDA-Public Use
  Company Number: CO-BAYER-2018-069071

PATIENT
  Age: 42 Year

DRUGS (1)
  1. ULTRAVIST? 300 [Suspect]
     Active Substance: IOPROMIDE
     Indication: COMPUTERISED TOMOGRAM ABDOMEN
     Dosage: 65 ML, ONCE
     Route: 042

REACTIONS (8)
  - Cyanosis [None]
  - Salivary hypersecretion [None]
  - Saliva discolouration [None]
  - Gaze palsy [None]
  - Tonic convulsion [None]
  - Death [Fatal]
  - Vomiting [None]
  - Musculoskeletal stiffness [None]
